FAERS Safety Report 4685139-8 (Version None)
Quarter: 2005Q2

REPORT INFORMATION
  Report Type: 
  Country: None (occurrence: None)
  Receive Date: 20050608
  Receipt Date: 20050525
  Transmission Date: 20051028
  Serious: Yes (Hospitalization)
  Sender: FDA-Public Use
  Company Number: US-AMGEN-US135726

PATIENT
  Age: 40 Year
  Sex: Female

DRUGS (2)
  1. KINERET [Suspect]
     Indication: RHEUMATOID ARTHRITIS
  2. METHOTREXATE [Concomitant]

REACTIONS (5)
  - HEADACHE [None]
  - INJECTION SITE PAIN [None]
  - MYALGIA [None]
  - PYREXIA [None]
  - RASH [None]
